FAERS Safety Report 13583034 (Version 15)
Quarter: 2017Q4

REPORT INFORMATION
  Report Type: Spontaneous
  Country: US (occurrence: US)
  Receive Date: 20170525
  Receipt Date: 20171122
  Transmission Date: 20180320
  Serious: Yes (Hospitalization)
  Sender: FDA-Public Use
  Company Number: US-ACTELION-A-US2017-154209

PATIENT
  Age: 43 Year
  Sex: Female

DRUGS (5)
  1. VELETRI [Suspect]
     Active Substance: EPOPROSTENOL
     Dosage: 43 NG/KG, PER MIN
     Route: 042
  2. SILDENAFIL. [Concomitant]
     Active Substance: SILDENAFIL
  3. OPSUMIT [Suspect]
     Active Substance: MACITENTAN
     Indication: PULMONARY ARTERIAL HYPERTENSION
     Dosage: 10 MG, QD
     Route: 048
     Dates: start: 20160816
  4. VELETRI [Suspect]
     Active Substance: EPOPROSTENOL
     Indication: PULMONARY ARTERIAL HYPERTENSION
     Dosage: 18 NG/KG, PER MIN
     Route: 042
     Dates: start: 20170210
  5. ADEMPAS [Concomitant]
     Active Substance: RIOCIGUAT

REACTIONS (14)
  - Hypotension [Recovered/Resolved]
  - Fluid retention [Unknown]
  - Condition aggravated [Unknown]
  - Dyspnoea [Unknown]
  - Weight increased [Unknown]
  - Chest pain [Unknown]
  - Bed rest [Unknown]
  - Catheter site related reaction [Unknown]
  - Heart rate increased [Recovered/Resolved]
  - Infection [Unknown]
  - Pulmonary arterial hypertension [Unknown]
  - Diarrhoea [Unknown]
  - Chest discomfort [Unknown]
  - Nausea [Unknown]

NARRATIVE: CASE EVENT DATE: 20170717
